FAERS Safety Report 12856185 (Version 2)
Quarter: 2017Q2

REPORT INFORMATION
  Report Type: Report from Study
  Country: US (occurrence: US)
  Receive Date: 20161018
  Receipt Date: 20170516
  Transmission Date: 20170830
  Serious: Yes (Hospitalization)
  Sender: FDA-Public Use
  Company Number: US-AMGEN-USASL2016141604

PATIENT
  Age: 64 Year
  Sex: Female

DRUGS (1)
  1. ENBREL [Suspect]
     Active Substance: ETANERCEPT
     Indication: ANKYLOSING SPONDYLITIS
     Dosage: 50 MG, ONCE WEEKLY
     Route: 065

REACTIONS (6)
  - Localised infection [Recovered/Resolved]
  - Fungal skin infection [Unknown]
  - Onychomycosis [Unknown]
  - Infection [Unknown]
  - Rash [Not Recovered/Not Resolved]
  - Animal bite [Recovered/Resolved]
